FAERS Safety Report 7648611-4 (Version None)
Quarter: 2011Q3

REPORT INFORMATION
  Report Type: 
  Country: None (occurrence: None)
  Receive Date: 20110801
  Receipt Date: 20110718
  Transmission Date: 20111222
  Serious: Yes (Other)
  Sender: FDA-Public Use
  Company Number: PHHY2011BR65811

PATIENT
  Sex: Female

DRUGS (1)
  1. DICLOFENAC SODIUM [Suspect]
     Dosage: 1 DF
     Route: 048

REACTIONS (4)
  - URTICARIA [None]
  - GENERALISED ERYTHEMA [None]
  - PRURITUS [None]
  - RASH MACULAR [None]
